FAERS Safety Report 9718304 (Version 1)
Quarter: 2013Q4

REPORT INFORMATION
  Report Type: Spontaneous
  Country: US (occurrence: US)
  Receive Date: 20131125
  Receipt Date: 20131125
  Transmission Date: 20140711
  Serious: No
  Sender: FDA-Public Use
  Company Number: US-VIVUS-2013V1000236

PATIENT
  Age: 52 Year
  Sex: Female
  Weight: 102.15 kg

DRUGS (11)
  1. QSYMIA 3.75MG/23MG [Suspect]
     Indication: WEIGHT DECREASED
     Dosage: DAILY DOSE: 2 CAPSULE,
     Route: 048
     Dates: start: 20130324
  2. QSYMIA 3.75MG/23MG [Suspect]
     Dosage: DAILY DOSE: 1 CAPSULE,
     Route: 048
     Dates: start: 20130322, end: 20130323
  3. UNSPECIFIED INGREDIENT [Concomitant]
     Indication: THYROID DISORDER
     Route: 048
     Dates: start: 2011
  4. NEURONTIN [Concomitant]
     Indication: HYPOAESTHESIA
     Route: 048
     Dates: start: 201302
  5. VIMOVO [Concomitant]
     Indication: INFLAMMATION
     Route: 048
     Dates: start: 2013
  6. PROZAC [Concomitant]
     Indication: DEPRESSION
     Route: 048
     Dates: start: 2003
  7. LORTAB [Concomitant]
     Indication: NECK PAIN
     Route: 048
     Dates: start: 2008
  8. LORTAB [Concomitant]
     Indication: BACK PAIN
  9. LASIX [Concomitant]
     Indication: INFLAMMATION
     Route: 048
     Dates: start: 1993
  10. VITAMIN D [Concomitant]
     Indication: PRODUCT USED FOR UNKNOWN INDICATION
     Dosage: DAILY DOSE: 10000 UNITS,
     Route: 048
  11. LISINOPRIL [Concomitant]
     Indication: PRODUCT USED FOR UNKNOWN INDICATION
     Route: 048
     Dates: start: 2012

REACTIONS (1)
  - Inappropriate schedule of drug administration [Not Recovered/Not Resolved]
